FAERS Safety Report 10039296 (Version 1)
Quarter: 2014Q1

REPORT INFORMATION
  Report Type: Spontaneous
  Country: US (occurrence: None)
  Receive Date: 20140318
  Receipt Date: 20140318
  Transmission Date: 20141002
  Serious: Yes (Other)
  Sender: FDA-Public Use
  Company Number: 2013CT000110

PATIENT
  Age: 57 Year
  Sex: Female
  Weight: 84.82 kg

DRUGS (3)
  1. KORLYM [Suspect]
     Indication: PITUITARY-DEPENDENT CUSHING^S SYNDROME
     Route: 048
     Dates: start: 201310, end: 20131226
  2. KORLYM [Suspect]
     Indication: PITUITARY TUMOUR
     Route: 048
     Dates: start: 201310, end: 20131226
  3. CRESTOR [Concomitant]

REACTIONS (8)
  - Headache [None]
  - Chest pain [None]
  - Fatigue [None]
  - Insomnia [None]
  - Panic reaction [None]
  - Feeling abnormal [None]
  - Oedema peripheral [None]
  - Pain in extremity [None]
